FAERS Safety Report 5408190-9 (Version None)
Quarter: 2007Q3

REPORT INFORMATION
  Report Type: 
  Country: None (occurrence: None)
  Receive Date: 20070808
  Receipt Date: 20070803
  Transmission Date: 20080115
  Serious: Yes (Other)
  Sender: FDA-Public Use
  Company Number: DE-BAYER-200710836BVD

PATIENT
  Age: 11 Year
  Sex: Female
  Weight: 14 kg

DRUGS (14)
  1. CIPROFLOXACIN HCL [Suspect]
     Indication: URINARY TRACT INFECTION
     Dosage: UNIT DOSE: 80 MG
     Route: 042
     Dates: start: 20070626, end: 20070714
  2. CIPROFLOXACIN HCL [Suspect]
     Route: 048
  3. CEFTAZIDIM [Concomitant]
  4. PIPERACILLIN [Concomitant]
     Dosage: UNIT DOSE: 500 MG
     Route: 042
     Dates: start: 20070704, end: 20070714
  5. FLUCONAZOLE [Concomitant]
     Route: 042
     Dates: start: 20070705, end: 20070714
  6. LAMICTAL [Concomitant]
     Dosage: UNIT DOSE: 37.5 MG
     Route: 048
  7. OMEPRAZOLE [Concomitant]
     Route: 048
  8. NITROFURANTOIN [Concomitant]
     Route: 048
  9. MAGNESIUM SULFATE [Concomitant]
     Route: 048
  10. KALINOR [Concomitant]
     Route: 048
  11. CANDIO-HERMAL [Concomitant]
     Route: 048
  12. INFECTOKRUPP [Concomitant]
     Route: 055
  13. BEPANTHEN L!SUNG [Concomitant]
     Route: 055
  14. NITROFURANTOIN [Concomitant]
     Route: 048
     Dates: start: 20070506

REACTIONS (1)
  - RENAL FAILURE ACUTE [None]
